FAERS Safety Report 4664615-8 (Version None)
Quarter: 2005Q2

REPORT INFORMATION
  Report Type: 
  Country: None (occurrence: None)
  Receive Date: 20050518
  Receipt Date: 20050503
  Transmission Date: 20051028
  Serious: Yes (Other)
  Sender: FDA-Public Use
  Company Number: US-GLAXOSMITHKLINE-A0557025A

PATIENT
  Age: 65 Year
  Sex: Female
  Weight: 54 kg

DRUGS (2)
  1. NICODERM 21MG (RX) [Suspect]
     Dosage: 21MG UNKNOWN
     Route: 062
  2. PROCARDIA [Concomitant]
     Indication: HYPERTENSION

REACTIONS (1)
  - LUNG NEOPLASM MALIGNANT [None]
